FAERS Safety Report 17840027 (Version 1)
Quarter: 2020Q2

REPORT INFORMATION
  Report Type: Spontaneous
  Country: US (occurrence: US)
  Receive Date: 20200529
  Receipt Date: 20200529
  Transmission Date: 20200714
  Serious: Yes (Other)
  Sender: FDA-Public Use
  Company Number: None

PATIENT
  Age: 65 Year
  Sex: Male
  Weight: 58.4 kg

DRUGS (20)
  1. NOREPINEPHRINE. [Concomitant]
     Active Substance: NOREPINEPHRINE
     Dates: start: 20200519
  2. FUROSEMIDE. [Concomitant]
     Active Substance: FUROSEMIDE
     Dates: start: 20200520, end: 20200522
  3. MULTIVITAMIN [Concomitant]
     Active Substance: VITAMINS
     Dates: start: 20200519
  4. NALOXEGOL [Concomitant]
     Active Substance: NALOXEGOL
     Dates: start: 20200520, end: 20200526
  5. REMDESIVIR. [Suspect]
     Active Substance: REMDESIVIR
     Indication: COVID-19
     Dates: start: 20200517, end: 20200521
  6. CEFAZOLIN [Concomitant]
     Active Substance: CEFAZOLIN
     Dates: start: 20200520, end: 20200521
  7. HYDROCORTISONE. [Concomitant]
     Active Substance: HYDROCORTISONE
     Dates: start: 20200520, end: 20200524
  8. ATRACURIUM [Concomitant]
     Active Substance: ATRACURIUM
     Dates: start: 20200520, end: 20200522
  9. VASOPRESSIN. [Concomitant]
     Active Substance: VASOPRESSIN
     Dates: start: 20200520
  10. ATOVASTATIN [Concomitant]
     Active Substance: ATORVASTATIN
     Dates: start: 20200519, end: 20200522
  11. TACROLIMUS. [Concomitant]
     Active Substance: TACROLIMUS
     Dates: start: 20200519, end: 20200524
  12. LANSOPRAZOLE. [Concomitant]
     Active Substance: LANSOPRAZOLE
     Dates: start: 20200519, end: 20200528
  13. ASPIRIN. [Concomitant]
     Active Substance: ASPIRIN
     Dates: start: 20200519
  14. CEFEPIME [Concomitant]
     Active Substance: CEFEPIME HYDROCHLORIDE
     Dates: start: 20200521, end: 20200522
  15. PROPOFOL. [Concomitant]
     Active Substance: PROPOFOL
     Dates: start: 20200520
  16. CALCIUM CITRATE/VITAMIN D [Concomitant]
     Active Substance: CALCIUM CITRATE\VITAMIN D
     Dates: start: 20200519
  17. ENOXAPARIN [Concomitant]
     Active Substance: ENOXAPARIN
     Dates: start: 20200520, end: 20200522
  18. TENOFOVIR [Concomitant]
     Active Substance: TENOFOVIR
     Dates: start: 20200519, end: 20200523
  19. DEXMEDETOMIDINE. [Concomitant]
     Active Substance: DEXMEDETOMIDINE
     Dates: start: 20200519, end: 20200524
  20. FENTANYL. [Concomitant]
     Active Substance: FENTANYL
     Dates: start: 20200521

REACTIONS (4)
  - Acute kidney injury [None]
  - Dialysis [None]
  - Blood creatinine increased [None]
  - Disease progression [None]

NARRATIVE: CASE EVENT DATE: 20200521
